FAERS Safety Report 8425217-0 (Version None)
Quarter: 2012Q2

REPORT INFORMATION
  Report Type: 
  Country: None (occurrence: None)
  Receive Date: 20120605
  Receipt Date: 20120524
  Transmission Date: 20120825
  Serious: Yes (Disabling, Other)
  Sender: FDA-Public Use
  Company Number: 2012P1034689

PATIENT
  Age: 36 Year
  Sex: Female
  Weight: 68.6746 kg

DRUGS (10)
  1. IBUPROFEN [Suspect]
     Indication: POSTOPERATIVE WOUND INFECTION
     Dosage: 600 MG;TID;PO
     Route: 048
     Dates: start: 20120308
  2. CEFUROXIME [Suspect]
     Indication: POSTOPERATIVE WOUND INFECTION
     Dosage: 1.5 GM;TID;IV
     Route: 042
     Dates: start: 20120308
  3. DRESSING (NO PREF. NAME) [Suspect]
     Indication: POSTOPERATIVE WOUND INFECTION
     Dosage: TID
     Dates: start: 20120308
  4. MORPHINE [Suspect]
     Indication: LEG AMPUTATION
     Dosage: 20 MG;SIX TIMES PER DAY;IV
     Route: 042
     Dates: start: 20120303
  5. METRONIDAZOLE [Suspect]
     Indication: POSTOPERATIVE WOUND INFECTION
     Dosage: 500 MG;TID;IV
     Route: 042
     Dates: start: 20120308
  6. CLOXACILLIN SODIUM [Suspect]
     Indication: POSTOPERATIVE WOUND INFECTION
     Dosage: 1 GM;QID;IV
     Route: 042
     Dates: start: 20120308
  7. BLINDED TRIAL MED-VIIV (NO PREF. NAME) [Suspect]
     Indication: HIV INFECTION
     Dosage: PO
     Route: 048
     Dates: start: 20111101
  8. LOPINAVIR AND RITONAVIR [Concomitant]
  9. DOLOROL FORTE (NO PREF. NAME) [Suspect]
     Indication: POSTOPERATIVE WOUND INFECTION
     Dosage: 2 TABLETS;TID;PO
     Route: 048
     Dates: start: 20120308
  10. SULFAMETHOXAZOLE AND TRIMETHOPRIM [Suspect]
     Indication: POSTOPERATIVE WOUND INFECTION
     Dosage: 2 TABLETS;BID;PO
     Route: 048
     Dates: start: 20120308

REACTIONS (8)
  - VASCULITIS [None]
  - GAS GANGRENE [None]
  - SEPSIS [None]
  - AORTIC OCCLUSION [None]
  - PSEUDOMONAS INFECTION [None]
  - LEG AMPUTATION [None]
  - POSTOPERATIVE WOUND INFECTION [None]
  - MYOSITIS [None]
